FAERS Safety Report 17284278 (Version 1)
Quarter: 2020Q1

REPORT INFORMATION
  Report Type: Spontaneous
  Country: US (occurrence: US)
  Receive Date: 20200117
  Receipt Date: 20200117
  Transmission Date: 20200409
  Serious: Yes (Hospitalization, Other)
  Sender: FDA-Public Use
  Company Number: US-ABBVIE-20K-163-3236433-00

PATIENT
  Age: 76 Year
  Sex: Female
  Weight: 66.28 kg

DRUGS (2)
  1. AMPICILLIN [Concomitant]
     Active Substance: AMPICILLIN
     Indication: INFECTION PROPHYLAXIS
  2. HUMIRA [Suspect]
     Active Substance: ADALIMUMAB
     Indication: COLITIS ULCERATIVE
     Route: 058
     Dates: start: 201908, end: 201912

REACTIONS (8)
  - Loss of consciousness [Recovered/Resolved]
  - Joint range of motion decreased [Recovering/Resolving]
  - Hypertension [Recovering/Resolving]
  - Head injury [Recovered/Resolved]
  - Weight decreased [Recovering/Resolving]
  - Neck pain [Recovering/Resolving]
  - Swelling [Recovering/Resolving]
  - Thrombosis [Recovering/Resolving]

NARRATIVE: CASE EVENT DATE: 2019
